FAERS Safety Report 9749461 (Version 1)
Quarter: 2013Q4

REPORT INFORMATION
  Report Type: Spontaneous
  Country: IT (occurrence: IT)
  Receive Date: 20131212
  Receipt Date: 20131212
  Transmission Date: 20140711
  Serious: Yes (Other)
  Sender: FDA-Public Use
  Company Number: IT-PFIZER INC-2013351881

PATIENT
  Age: 56 Year
  Sex: Female

DRUGS (2)
  1. SOLU-MEDROL [Suspect]
     Indication: EYE DISORDER
     Dosage: 500 MG, DAILY
     Route: 042
     Dates: start: 20131113, end: 20131113
  2. TAPAZOLE [Concomitant]
     Route: 048

REACTIONS (2)
  - Hepatitis acute [Recovered/Resolved]
  - Transaminases increased [Recovered/Resolved]
